FAERS Safety Report 25802487 (Version 2)
Quarter: 2025Q4

REPORT INFORMATION
  Report Type: Spontaneous
  Country: JP (occurrence: JP)
  Receive Date: 20250915
  Receipt Date: 20251110
  Transmission Date: 20260117
  Serious: Yes (Hospitalization)
  Sender: JOHNSON AND JOHNSON
  Company Number: JP-JNJFOC-20250919921

PATIENT
  Age: 7 Decade
  Sex: Female

DRUGS (5)
  1. TREMFYA [Suspect]
     Active Substance: GUSELKUMAB
     Indication: Palmoplantar pustulosis
     Dosage: EVERY 4 TO 8 WEEKS
     Route: 058
     Dates: start: 20231226, end: 20240125
  2. TREMFYA [Suspect]
     Active Substance: GUSELKUMAB
  3. TREMFYA [Suspect]
     Active Substance: GUSELKUMAB
  4. CYCLOSPORINE [Concomitant]
     Active Substance: CYCLOSPORINE
     Indication: Palmoplantar pustulosis
     Dosage: DOSE UNKNOWN
     Route: 065
  5. CYCLOSPORINE [Concomitant]
     Active Substance: CYCLOSPORINE
     Indication: Pustulotic arthro-osteitis

REACTIONS (1)
  - Rheumatoid arthritis [Recovered/Resolved]

NARRATIVE: CASE EVENT DATE: 20240129
